FAERS Safety Report 24789151 (Version 1)
Quarter: 2024Q4

REPORT INFORMATION
  Report Type: Spontaneous
  Country: US (occurrence: None)
  Receive Date: 20241228
  Receipt Date: 20241228
  Transmission Date: 20250114
  Serious: Yes (Life-Threatening, Hospitalization, Disabling)
  Sender: Public
  Company Number: None

PATIENT
  Age: 50 Year
  Sex: Female
  Weight: 77.4 kg

DRUGS (4)
  1. METHYLPREDNISOLONE [Suspect]
     Active Substance: METHYLPREDNISOLONE
     Indication: Chest pain
  2. METHYLPREDNISOLONE [Suspect]
     Active Substance: METHYLPREDNISOLONE
     Indication: Respiratory tract congestion
  3. METHYLPREDNISOLONE [Suspect]
     Active Substance: METHYLPREDNISOLONE
     Indication: Respiratory tract congestion
  4. ALBUTEROL [Suspect]
     Active Substance: ALBUTEROL

REACTIONS (6)
  - Seizure [None]
  - Fall [None]
  - Face injury [None]
  - Swelling face [None]
  - Eye contusion [None]
  - Impaired work ability [None]

NARRATIVE: CASE EVENT DATE: 20241015
